FAERS Safety Report 9188426 (Version 1)
Quarter: 2013Q1

REPORT INFORMATION
  Report Type: Spontaneous
  Country: US (occurrence: US)
  Receive Date: 20130325
  Receipt Date: 20130325
  Transmission Date: 20140127
  Serious: No
  Sender: FDA-Public Use
  Company Number: US-MYLANLABS-2013S1002147

PATIENT
  Age: 41 Year
  Sex: Female
  Weight: 63.5 kg

DRUGS (2)
  1. NIFEDIPINE EXTENDED RELEASE [Suspect]
     Indication: BLOOD PRESSURE INCREASED
     Route: 048
     Dates: start: 201206, end: 20130124
  2. PRENATAL VITAMINS [Concomitant]
     Indication: DELIVERY
     Dosage: BREAST FEEDING

REACTIONS (3)
  - Drug effect decreased [Not Recovered/Not Resolved]
  - Blood pressure increased [Not Recovered/Not Resolved]
  - Rash [Recovering/Resolving]
